FAERS Safety Report 10525258 (Version 1)
Quarter: 2014Q4

REPORT INFORMATION
  Report Type: Spontaneous
  Country: GB (occurrence: None)
  Receive Date: 20141015
  Receipt Date: 20141015
  Transmission Date: 20150528
  Serious: Yes (Other)
  Sender: FDA-Public Use
  Company Number: GB-H14001-14-00957

PATIENT
  Age: 71 Year
  Sex: Female

DRUGS (2)
  1. CLINDAMYCIN [Suspect]
     Active Substance: CLINDAMYCIN\CLINDAMYCIN PHOSPHATE
     Indication: PRODUCT USED FOR UNKNOWN INDICATION
     Dates: start: 201407, end: 201407
  2. METRONDIAZOLE (METRONDIAZOLE) (UNKNOWN) (METRONDIAZOLE) [Concomitant]

REACTIONS (5)
  - Atrial fibrillation [None]
  - Refusal of treatment by patient [None]
  - Palpitations [None]
  - Extrasystoles [None]
  - Blood potassium decreased [None]

NARRATIVE: CASE EVENT DATE: 201407
